FAERS Safety Report 7911517-7 (Version None)
Quarter: 2011Q4

REPORT INFORMATION
  Report Type: 
  Country: None (occurrence: None)
  Receive Date: 20111114
  Receipt Date: 20111031
  Transmission Date: 20120403
  Serious: Yes (Hospitalization, Other)
  Sender: FDA-Public Use
  Company Number: US-ELI_LILLY_AND_COMPANY-US201109008483

PATIENT
  Age: 38 Year
  Sex: Female
  Weight: 79.819 kg

DRUGS (2)
  1. ZYPREXA [Suspect]
     Indication: MANIA
     Dosage: 10 MG, EACH EVENING
     Route: 048
     Dates: start: 20110926
  2. TEGRETOL [Concomitant]
     Dosage: 200 MG, BID
     Dates: start: 20110926

REACTIONS (2)
  - AGITATION [None]
  - MANIA [None]
